FAERS Safety Report 7392921-5 (Version None)
Quarter: 2011Q2

REPORT INFORMATION
  Report Type: 
  Country: None (occurrence: None)
  Receive Date: 20110404
  Receipt Date: 20110331
  Transmission Date: 20111010
  Serious: Yes (Hospitalization)
  Sender: FDA-Public Use
  Company Number: US-CEPHALON-2011001515

PATIENT
  Age: 82 Year
  Sex: Male
  Weight: 87 kg

DRUGS (2)
  1. RITUXAN [Suspect]
     Indication: CHRONIC LYMPHOCYTIC LEUKAEMIA
     Route: 042
     Dates: start: 20110106, end: 20110222
  2. BENDAMUSTINE HCL [Suspect]
     Indication: CHRONIC LYMPHOCYTIC LEUKAEMIA
     Route: 042
     Dates: start: 20110222, end: 20110222

REACTIONS (5)
  - ANAEMIA [None]
  - NAUSEA [None]
  - TUMOUR LYSIS SYNDROME [None]
  - HYPOXIA [None]
  - WHEEZING [None]
